FAERS Safety Report 13269125 (Version 1)
Quarter: 2017Q1

REPORT INFORMATION
  Report Type: Spontaneous
  Country: FR (occurrence: FR)
  Receive Date: 20170224
  Receipt Date: 20170224
  Transmission Date: 20170428
  Serious: Yes (Hospitalization)
  Sender: FDA-Public Use
  Company Number: FR-009507513-1702FRA008695

PATIENT
  Age: 47 Year
  Sex: Female

DRUGS (5)
  1. JANUMET [Suspect]
     Active Substance: METFORMIN HYDROCHLORIDE\SITAGLIPTIN PHOSPHATE
     Dosage: 14 (TABLETS) DF SINGLE INTAKE, 50MG/1000MG (TOTAL DOSE OF 520 MG OF SITAGLIPTIN AND 14 G METFORMIN
     Route: 048
     Dates: start: 20170117, end: 20170117
  2. LERCAPRESS (ENALAPRIL MALEATE (+) LERCANIDIPINE HYDROCHLORIDE) [Suspect]
     Active Substance: ENALAPRIL MALEATE\LERCANIDIPINE HYDROCHLORIDE
     Dosage: 13 (TABLETS) DF SINGLE INTAKE, 20MG/10 MG, TOTAL DOSE OF 260 MG OF ENALAPRIL, 130 MG LERCANIDIPINE
     Route: 048
     Dates: start: 20170117, end: 20170117
  3. ONGLYZA [Suspect]
     Active Substance: SAXAGLIPTIN HYDROCHLORIDE
     Dosage: 45 MG, IN AN SINGLE INTAKE, 9 TABLETS
     Route: 048
     Dates: start: 20170117, end: 20170117
  4. SPIRONOLACTONE. [Suspect]
     Active Substance: SPIRONOLACTONE
     Dosage: 1125 MG, SINGLE INTAKE, 15 TABLETS
     Route: 048
     Dates: start: 20170117, end: 20170117
  5. COLCHIMAX (COLCHICINE (+) DICYCLOMINE HYDROCHLORIDE) [Suspect]
     Active Substance: COLCHICINE\DICYCLOMINE HYDROCHLORIDE
     Dosage: 25 MG, SINGLE INTAKE, 25 TABLETS
     Route: 048
     Dates: start: 20170117, end: 20170117

REACTIONS (5)
  - Abdominal pain [Recovered/Resolved]
  - Tachycardia [Recovered/Resolved]
  - Intentional overdose [None]
  - Vomiting [Recovered/Resolved]
  - Nausea [Recovered/Resolved]

NARRATIVE: CASE EVENT DATE: 20170118
